FAERS Safety Report 10343111 (Version 1)
Quarter: 2014Q3

REPORT INFORMATION
  Report Type: Spontaneous
  Country: US (occurrence: US)
  Receive Date: 20140725
  Receipt Date: 20140725
  Transmission Date: 20150326
  Serious: Yes (Hospitalization, Other)
  Sender: FDA-Public Use
  Company Number: US-JNJFOC-20140713848

PATIENT
  Sex: Male

DRUGS (1)
  1. XARELTO [Suspect]
     Active Substance: RIVAROXABAN
     Indication: THROMBOSIS PROPHYLAXIS
     Route: 048
     Dates: start: 2013

REACTIONS (11)
  - Osteomyelitis [Recovered/Resolved]
  - Post procedural haemorrhage [Not Recovered/Not Resolved]
  - Arterial occlusive disease [Recovered/Resolved]
  - Incorrect dose administered [Unknown]
  - Drug dose omission [Unknown]
  - Drug prescribing error [Unknown]
  - Ecchymosis [Not Recovered/Not Resolved]
  - Epistaxis [Not Recovered/Not Resolved]
  - Toe amputation [Unknown]
  - Incision site haemorrhage [Not Recovered/Not Resolved]
  - Gas gangrene [Recovered/Resolved]

NARRATIVE: CASE EVENT DATE: 2013
